FAERS Safety Report 9909552 (Version 2)
Quarter: 2014Q1

REPORT INFORMATION
  Report Type: Spontaneous
  Country: US (occurrence: US)
  Receive Date: 20140219
  Receipt Date: 20140225
  Transmission Date: 20141002
  Serious: Yes (Other)
  Sender: FDA-Public Use
  Company Number: US-PFIZER INC-2014044638

PATIENT
  Age: 64 Year
  Sex: Female
  Weight: 79.37 kg

DRUGS (4)
  1. LYRICA [Suspect]
     Indication: FIBROMYALGIA
     Dosage: 150 MG, 3X/DAY
     Route: 048
     Dates: start: 2012
  2. LYRICA [Suspect]
     Indication: PARAESTHESIA
     Dosage: UNK
  3. SPIRIVA [Concomitant]
     Dosage: UNK
  4. BIOFLAVONOIDS [Concomitant]
     Dosage: UNK

REACTIONS (8)
  - Off label use [Unknown]
  - Laceration [Unknown]
  - Carpal tunnel syndrome [Unknown]
  - Paraesthesia [Unknown]
  - Nerve injury [Unknown]
  - Hypoaesthesia [Unknown]
  - Sensory loss [Unknown]
  - Therapeutic response unexpected [Unknown]
